FAERS Safety Report 7540738-0 (Version None)
Quarter: 2011Q2

REPORT INFORMATION
  Report Type: 
  Country: None (occurrence: None)
  Receive Date: 20110610
  Receipt Date: 20110607
  Transmission Date: 20111010
  Serious: Yes (Hospitalization)
  Sender: FDA-Public Use
  Company Number: JP-SANOFI-AVENTIS-2010SA066119

PATIENT
  Age: 76 Year
  Sex: Male
  Weight: 67 kg

DRUGS (33)
  1. FUROSEMIDE [Concomitant]
     Indication: CARDIAC FAILURE CONGESTIVE
     Route: 048
     Dates: start: 20091119, end: 20101103
  2. FUROSEMIDE [Concomitant]
     Route: 048
     Dates: start: 20101107
  3. SODIUM PICOSULFATE [Concomitant]
  4. CEFAZOLIN SODIUM [Concomitant]
     Route: 041
     Dates: start: 20101104, end: 20101111
  5. METFFORMIN HYDROCHLORIDE [Concomitant]
     Indication: DIABETES MELLITUS
     Route: 048
     Dates: start: 20090226
  6. GLYBURIDE [Concomitant]
     Route: 048
     Dates: start: 20100226
  7. ALOSENN [Concomitant]
     Indication: CONSTIPATION
     Route: 048
     Dates: start: 20090226, end: 20101028
  8. ALOSENN [Concomitant]
     Route: 048
     Dates: start: 20101031
  9. HUMALIN [Concomitant]
     Indication: DIABETES MELLITUS
     Route: 058
     Dates: start: 20101102
  10. TAMBOCOR [Concomitant]
     Indication: ARRHYTHMIA
     Route: 048
     Dates: start: 20101111
  11. FLECAINIDE ACETATE [Concomitant]
     Route: 048
     Dates: start: 20101111
  12. CLOPIDOGREL BISULFATE [Suspect]
     Route: 048
     Dates: start: 20091224, end: 20100318
  13. CLOPIDOGREL BISULFATE [Suspect]
     Route: 048
     Dates: start: 20100319, end: 20101029
  14. ATORVASTATIN [Concomitant]
     Route: 048
     Dates: start: 20090226
  15. FAMOTIDINE [Concomitant]
     Route: 048
     Dates: start: 20101107, end: 20101203
  16. CILOSTAZOL [Concomitant]
     Indication: THROMBOSIS PROPHYLAXIS
     Route: 048
     Dates: start: 20090807, end: 20101029
  17. EPINASTINE HYDROCHLORIDE [Concomitant]
     Route: 048
     Dates: start: 20100210
  18. SODIUM PICOSULFATE [Concomitant]
     Dosage: DOSE:20 UNIT(S)
     Route: 048
     Dates: start: 20101102
  19. HYDROCORTISONE BUTYRATE [Concomitant]
     Indication: DERMATITIS
     Route: 062
     Dates: start: 20100210
  20. OMEPRAZOLE [Concomitant]
     Indication: GASTRIC HAEMORRHAGE
     Dates: start: 20101102
  21. SEVEN EP [Concomitant]
     Route: 048
     Dates: start: 20100819, end: 20100821
  22. LOXOPROFEN SODIUM [Concomitant]
  23. MAGNESIUM OXIDE [Concomitant]
     Route: 048
     Dates: start: 20101031
  24. FAMOTIDINE [Concomitant]
     Route: 048
     Dates: start: 20100226, end: 20101029
  25. AMLODIPINE BESYLATE [Concomitant]
     Indication: HYPERTENSION
     Route: 048
     Dates: start: 20090226
  26. SPIRONOLACTONE [Concomitant]
     Indication: CARDIAC FAILURE CONGESTIVE
     Route: 048
     Dates: start: 20091119, end: 20101103
  27. MAGNESIUM OXIDE HEAVY [Concomitant]
     Indication: CONSTIPATION
     Route: 048
     Dates: start: 20100514
  28. FELBINAC [Concomitant]
     Route: 062
     Dates: start: 20100318
  29. LAXOBERON [Concomitant]
     Indication: CONSTIPATION
     Dates: start: 20101102
  30. ORA [Concomitant]
     Route: 061
     Dates: start: 20100819, end: 20100819
  31. SPIRONOLACTONE [Concomitant]
     Route: 048
     Dates: start: 20101107
  32. CEFDITOREN PIVOXIL [Concomitant]
     Route: 048
     Dates: start: 20100819, end: 20100821
  33. LOXOPROFEN SODIUM [Concomitant]
     Route: 048
     Dates: start: 20100819, end: 20100821

REACTIONS (3)
  - GASTROINTESTINAL HAEMORRHAGE [None]
  - LARGE INTESTINE CARCINOMA [None]
  - GASTRIC CANCER [None]
